FAERS Safety Report 5624155-6 (Version None)
Quarter: 2008Q1

REPORT INFORMATION
  Report Type: 
  Country: None (occurrence: None)
  Receive Date: 20080213
  Receipt Date: 20080207
  Transmission Date: 20080703
  Serious: Yes (Other)
  Sender: FDA-Public Use
  Company Number: US-ALLERGAN-200601521

PATIENT
  Sex: Female

DRUGS (5)
  1. BOTOX COSMETIC [Suspect]
     Indication: SKIN WRINKLING
     Dosage: 60UNITS, SINGLE
     Route: 030
     Dates: start: 20060203, end: 20060203
  2. BOTOX COSMETIC [Suspect]
  3. RESTALYN [Concomitant]
     Indication: SKIN COSMETIC PROCEDURE
     Dosage: UNK, UNK
     Dates: start: 20060127, end: 20060127
  4. ALLEGRA [Concomitant]
     Indication: DRUG USE FOR UNKNOWN INDICATION
     Dosage: 180MG, UNKNOWN
     Route: 065
  5. NASONEX [Concomitant]
     Indication: DRUG USE FOR UNKNOWN INDICATION

REACTIONS (5)
  - FLUSHING [None]
  - PALLOR [None]
  - PARAESTHESIA ORAL [None]
  - RASH [None]
  - SWOLLEN TONGUE [None]
